FAERS Safety Report 9640041 (Version 1)
Quarter: 2013Q4

REPORT INFORMATION
  Report Type: Report from Study
  Country: US (occurrence: US)
  Receive Date: 20131023
  Receipt Date: 20131023
  Transmission Date: 20140711
  Serious: Yes (Death)
  Sender: FDA-Public Use
  Company Number: PHEH2013US021894

PATIENT
  Age: 69 Year
  Sex: Female

DRUGS (6)
  1. AFINITOR [Suspect]
     Dosage: 5 MG, QD
     Route: 048
  2. LISINOPRIL [Concomitant]
  3. SENOKOT                                 /UNK/ [Concomitant]
  4. CAL MAG ZINC [Concomitant]
  5. CENTRUM SILVER [Concomitant]
  6. ECHINACEA [Concomitant]

REACTIONS (1)
  - Death [Fatal]
